FAERS Safety Report 20616543 (Version 1)
Quarter: 2022Q1

REPORT INFORMATION
  Report Type: Spontaneous
  Country: CN (occurrence: CN)
  Receive Date: 20220321
  Receipt Date: 20220321
  Transmission Date: 20220423
  Serious: Yes (Other)
  Sender: FDA-Public Use
  Company Number: CN-PFIZER INC-202200397419

PATIENT
  Age: 56 Year
  Sex: Female
  Weight: 50 kg

DRUGS (6)
  1. CELEBREX [Suspect]
     Active Substance: CELECOXIB
     Indication: Pain
     Dosage: 0.2 G, 2X/DAY
     Route: 048
     Dates: start: 20220224, end: 20220302
  2. CEFTIZOXIME SODIUM [Suspect]
     Active Substance: CEFTIZOXIME SODIUM
     Indication: Thoracic vertebral fracture
     Dosage: 2 G, 2X/DAY
     Route: 041
     Dates: start: 20220224, end: 20220304
  3. COMPOUND PORCINE CEREBROSIDE AND GANGLIOSIDE [Concomitant]
     Indication: Thoracic vertebral fracture
     Dosage: 10 ML, 1X/DAY
     Route: 041
     Dates: start: 20220224, end: 20220306
  4. ANALGECINE [Concomitant]
     Indication: Thoracic vertebral fracture
     Dosage: 7.2 IU, 1X/DAY
     Route: 041
     Dates: start: 20220224, end: 20220226
  5. TRAMADOL [Concomitant]
     Active Substance: TRAMADOL
     Indication: Thoracic vertebral fracture
     Dosage: 100 MG, 2X/DAY
     Route: 048
     Dates: start: 20220224, end: 20220301
  6. NUO YANG [Concomitant]
     Indication: Thoracic vertebral fracture
     Dosage: 1 MG, 2X/DAY
     Route: 041
     Dates: start: 20220225, end: 20220307

REACTIONS (1)
  - Hepatocellular injury [Recovering/Resolving]

NARRATIVE: CASE EVENT DATE: 20220228
